FAERS Safety Report 8604260-2 (Version None)
Quarter: 2012Q3

REPORT INFORMATION
  Report Type: 
  Country: None (occurrence: None)
  Receive Date: 20120807
  Receipt Date: 20120727
  Transmission Date: 20120928
  Serious: Yes (Other)
  Sender: FDA-Public Use
  Company Number: PD 166

PATIENT
  Age: 6 Year
  Sex: Female

DRUGS (1)
  1. LEVETIRACETAM [Suspect]
     Indication: EPILEPSY
     Dosage: 15-53MG/KG/DAY, ORAL
     Route: 048

REACTIONS (4)
  - AUTISM [None]
  - VOMITING [None]
  - HEADACHE [None]
  - STEREOTYPY [None]
